FAERS Safety Report 7144850-X (Version None)
Quarter: 2010Q4

REPORT INFORMATION
  Report Type: 
  Country: None (occurrence: None)
  Receive Date: 20101123
  Receipt Date: 20101109
  Transmission Date: 20110411
  Serious: Yes (Hospitalization)
  Sender: FDA-Public Use
  Company Number: 2010MA004367

PATIENT
  Age: 51 Year
  Sex: Female

DRUGS (4)
  1. DICLOFENAC SODIUM [Suspect]
     Indication: BACK PAIN
     Dosage: IM
     Route: 030
  2. TENOXICAM (TENOXICAM) [Suspect]
     Indication: BACK PAIN
     Dosage: IM
     Route: 030
  3. THIOCOLCHICOSIDE [Concomitant]
  4. . [Concomitant]

REACTIONS (11)
  - ALANINE AMINOTRANSFERASE INCREASED [None]
  - ASPARTATE AMINOTRANSFERASE INCREASED [None]
  - EXCESSIVE GRANULATION TISSUE [None]
  - EXTRADURAL ABSCESS [None]
  - GAIT DISTURBANCE [None]
  - INTERVERTEBRAL DISCITIS [None]
  - LASEGUE'S TEST POSITIVE [None]
  - MONOPARESIS [None]
  - MUSCLE ABSCESS [None]
  - PAIN IN EXTREMITY [None]
  - STAPHYLOCOCCAL ABSCESS [None]
